FAERS Safety Report 15686618 (Version 1)
Quarter: 2018Q4

REPORT INFORMATION
  Report Type: Spontaneous
  Country: CZ (occurrence: CZ)
  Receive Date: 20181204
  Receipt Date: 20181204
  Transmission Date: 20190205
  Serious: Yes (Hospitalization)
  Sender: FDA-Public Use
  Company Number: CZ-ALLERGAN-1856261US

PATIENT
  Age: 77 Year
  Sex: Male

DRUGS (2)
  1. CEFTAROLINE FOSAMIL - BP [Suspect]
     Active Substance: CEFTAROLINE FOSAMIL
     Dosage: 600 MG, 2XDAY
     Route: 065
     Dates: start: 20181017
  2. CEFTAROLINE FOSAMIL - BP [Suspect]
     Active Substance: CEFTAROLINE FOSAMIL
     Indication: WOUND INFECTION STAPHYLOCOCCAL
     Dosage: 600 MG, 2XDAY
     Route: 065
     Dates: start: 20180927, end: 20181002

REACTIONS (2)
  - Incorrect product administration duration [Unknown]
  - Condition aggravated [Recovered/Resolved]

NARRATIVE: CASE EVENT DATE: 20181002
